FAERS Safety Report 25385661 (Version 1)
Quarter: 2025Q2

REPORT INFORMATION
  Report Type: Spontaneous
  Country: IT (occurrence: None)
  Receive Date: 20250601
  Receipt Date: 20250601
  Transmission Date: 20250716
  Serious: Yes (Disabling)
  Sender: FDA-CTU
  Company Number: None

PATIENT
  Age: 45 Year
  Sex: Female

DRUGS (1)
  1. VENLAFAXINE HYDROCHLORIDE [Suspect]
     Active Substance: VENLAFAXINE HYDROCHLORIDE

REACTIONS (14)
  - Withdrawal syndrome [None]
  - Fatigue [None]
  - Insomnia [None]
  - Photophobia [None]
  - Hyperacusis [None]
  - Palpitations [None]
  - Diarrhoea [None]
  - Paraesthesia [None]
  - Retching [None]
  - Anxiety [None]
  - Therapy change [None]
  - Bedridden [None]
  - Job dissatisfaction [None]
  - Post-traumatic stress disorder [None]

NARRATIVE: CASE EVENT DATE: 20240916
